FAERS Safety Report 9200174 (Version 4)
Quarter: 2013Q3

REPORT INFORMATION
  Report Type: Spontaneous
  Country: US (occurrence: US)
  Receive Date: 20130329
  Receipt Date: 20130916
  Transmission Date: 20140515
  Serious: Yes (Hospitalization, Disabling, Other)
  Sender: FDA-Public Use
  Company Number: US-009507513-1303USA012857

PATIENT
  Sex: Female
  Weight: 246.26 kg

DRUGS (2)
  1. NUVARING [Suspect]
     Indication: CONTRACEPTION
     Dosage: UNK
     Route: 067
     Dates: start: 20081113
  2. NUVARING [Suspect]
     Dosage: UNK
     Route: 067
     Dates: start: 200902, end: 200904

REACTIONS (17)
  - Gastric bypass [Unknown]
  - Deep vein thrombosis [Unknown]
  - Disability [Unknown]
  - Pyrexia [Unknown]
  - Mental disorder [Unknown]
  - Genital herpes [Unknown]
  - Depression [Unknown]
  - Vulvovaginal mycotic infection [Unknown]
  - Chlamydial infection [Unknown]
  - Uterine inflammation [Unknown]
  - Abdominal hernia [Unknown]
  - Hypertension [Unknown]
  - Osteoarthritis [Unknown]
  - Venous insufficiency [Unknown]
  - Type 2 diabetes mellitus [Unknown]
  - Sleep apnoea syndrome [Unknown]
  - Varicose vein [Unknown]
